FAERS Safety Report 6377334-7 (Version None)
Quarter: 2009Q3

REPORT INFORMATION
  Report Type: 
  Country: None (occurrence: None)
  Receive Date: 20090921
  Receipt Date: 20090908
  Transmission Date: 20100115
  Serious: Yes (Hospitalization)
  Sender: FDA-Public Use
  Company Number: CLOF-1000621

PATIENT
  Age: 66 Year
  Sex: Female
  Weight: 64 kg

DRUGS (18)
  1. EVOLTRA (CLOFARABINE) SOLUTION FOR INFUSION [Suspect]
     Indication: ACUTE MYELOID LEUKAEMIA
     Dosage: 34 MG, QDX5, INTRAVENOUS; 32 MG, QDX5,
     Route: 042
     Dates: start: 20090513, end: 20090517
  2. EVOLTRA (CLOFARABINE) SOLUTION FOR INFUSION [Suspect]
     Indication: ACUTE MYELOID LEUKAEMIA
     Dosage: 34 MG, QDX5, INTRAVENOUS; 32 MG, QDX5,
     Route: 042
     Dates: start: 20090617, end: 20090621
  3. DAUNORUBICIN (DAUNORUBICIN) INTRAVENOUS INFUSION [Suspect]
     Indication: ACUTE MYELOID LEUKAEMIA
     Dosage: 85 MG, QDX5, INTRAVENOUS; 85 MG, QD,
     Route: 042
     Dates: start: 20090513, end: 20090517
  4. DAUNORUBICIN (DAUNORUBICIN) INTRAVENOUS INFUSION [Suspect]
     Indication: ACUTE MYELOID LEUKAEMIA
     Dosage: 85 MG, QDX5, INTRAVENOUS; 85 MG, QD,
     Route: 042
     Dates: start: 20090617, end: 20090621
  5. GEMTUZUMAB (GEMTUZUMAB) INTRAVENOUS INFUSION [Suspect]
     Indication: ACUTE MYELOID LEUKAEMIA
     Dosage: 5 MG, QD, INTRAVENOUS
     Route: 042
     Dates: start: 20090513, end: 20090513
  6. HYDROXYCARBAMIDE (HYDROXYCARBAMIDE) ORAL SOLUTION [Concomitant]
  7. ATENOLOL (ATENOLOL) ORAL SOLUTION [Concomitant]
  8. VANCOMYCIN [Suspect]
  9. FLUCLOXACILLIN (FLUCLOXACILLIN) ORAL SOLUTION [Concomitant]
  10. ADIPINE (NIFEDIPINE) ORAL SOLUTION [Concomitant]
  11. ASPIRIN (SALICYLAMIDE) ORAL SOLUTION [Concomitant]
  12. SIMVASTATIN (SIMVASTATIN) ORAL SOLUTION [Concomitant]
  13. ONDANSETRON (ONDANSETRON) ORAL SOLUTION [Concomitant]
  14. LOPERAMIDE (LOPERAMIDE OXIDE) ORAL SOLUTION [Concomitant]
  15. CYCLIZINE (CYCLIZINE) INTRAVENOUS INFUSION [Concomitant]
  16. MEROPENEM (MEROPENEM) UNKNOWN [Concomitant]
  17. SANDO K (POTASSIUM CHLORIDE) ORAL SOLUTION [Concomitant]
  18. POTASSIUM CHLORIDE (POTASSIUM CHLORIDE, SODIUM CHLORIDE) INTRAVENOUS I [Concomitant]

REACTIONS (7)
  - BLOOD CULTURE POSITIVE [None]
  - CANDIDIASIS [None]
  - CHOLELITHIASIS [None]
  - FLANK PAIN [None]
  - HYPOKALAEMIA [None]
  - PYREXIA [None]
  - RENAL TUBULAR DISORDER [None]
